FAERS Safety Report 9543319 (Version 2)
Quarter: 2013Q3

REPORT INFORMATION
  Report Type: Spontaneous
  Country: CN (occurrence: CN)
  Receive Date: 20130923
  Receipt Date: 20130923
  Transmission Date: 20140515
  Serious: Yes (Hospitalization)
  Sender: FDA-Public Use
  Company Number: CN-009507513-2011SP018815

PATIENT
  Age: 1 Year
  Sex: Female

DRUGS (1)
  1. DIPROSPAN [Suspect]
     Indication: URTICARIA PAPULAR
     Dosage: 0.5 ML, UNK
     Route: 030
     Dates: start: 20101105, end: 20101105

REACTIONS (1)
  - Muscle contracture [Recovered/Resolved]
